FAERS Safety Report 14952169 (Version 1)
Quarter: 2018Q2

REPORT INFORMATION
  Report Type: Spontaneous
  Country: US (occurrence: US)
  Receive Date: 20180530
  Receipt Date: 20180530
  Transmission Date: 20180711
  Serious: Yes (Death, Other)
  Sender: FDA-Public Use
  Company Number: US-PFIZER INC-2018214896

PATIENT
  Age: 53 Year
  Sex: Female

DRUGS (1)
  1. IBRANCE [Suspect]
     Active Substance: PALBOCICLIB
     Indication: BREAST CANCER METASTATIC
     Dosage: 125 MG, UNK
     Route: 048

REACTIONS (7)
  - Flatulence [Unknown]
  - Platelet count decreased [Recovering/Resolving]
  - Liver injury [Fatal]
  - Weight decreased [Unknown]
  - Malnutrition [Fatal]
  - Gastrointestinal oedema [Unknown]
  - Asthenia [Fatal]

NARRATIVE: CASE EVENT DATE: 20180430
